FAERS Safety Report 22256363 (Version 1)
Quarter: 2023Q2

REPORT INFORMATION
  Report Type: Spontaneous
  Country: JP (occurrence: JP)
  Receive Date: 20230426
  Receipt Date: 20230426
  Transmission Date: 20230722
  Serious: Yes (Other)
  Sender: FDA-Public Use
  Company Number: JP-BAUSCHBL-2023BNL003522

PATIENT
  Age: 79 Year
  Sex: Female

DRUGS (11)
  1. DEXAMETHASONE [Suspect]
     Active Substance: DEXAMETHASONE
     Indication: COVID-19
     Route: 065
     Dates: start: 2021
  2. DEXAMETHASONE [Suspect]
     Active Substance: DEXAMETHASONE
     Indication: Immune thrombocytopenia
  3. ELTROMBOPAG [Concomitant]
     Active Substance: ELTROMBOPAG
     Indication: Immune thrombocytopenia
     Dosage: EVERY OTHER DAY
  4. ELTROMBOPAG [Concomitant]
     Active Substance: ELTROMBOPAG
     Dates: start: 2021
  5. ELTROMBOPAG [Concomitant]
     Active Substance: ELTROMBOPAG
  6. OXYGEN [Concomitant]
     Active Substance: OXYGEN
     Indication: COVID-19
     Dosage: 2L/MIN BY NASAL PRONGS
     Dates: start: 2021
  7. IMMUNOGLOBULIN [Concomitant]
     Indication: COVID-19
     Route: 042
     Dates: start: 2021, end: 2021
  8. REMDESIVIR [Concomitant]
     Active Substance: REMDESIVIR
     Indication: COVID-19
     Dates: start: 2021
  9. FAVIPIRAVIR [Concomitant]
     Active Substance: FAVIPIRAVIR
     Indication: COVID-19
     Dates: start: 2021, end: 2021
  10. HEPARIN [Concomitant]
     Active Substance: HEPARIN SODIUM
     Indication: Prophylaxis
     Dosage: INTRAVENOUS HEPARIN SODIUM OF 5000-10,000U/DAY OR SUBCUTANEOUS HEPARIN CALCIUM OF 2500-5000U/DAY
     Route: 042
     Dates: start: 2021, end: 2021
  11. HEPARIN [Concomitant]
     Active Substance: HEPARIN SODIUM
     Indication: Coagulopathy

REACTIONS (1)
  - Therapy non-responder [Unknown]

NARRATIVE: CASE EVENT DATE: 20210101
